FAERS Safety Report 8300747-0 (Version None)
Quarter: 2012Q2

REPORT INFORMATION
  Report Type: 
  Country: None (occurrence: None)
  Receive Date: 20120420
  Receipt Date: 20120416
  Transmission Date: 20120825
  Serious: Yes (Hospitalization, Other)
  Sender: FDA-Public Use
  Company Number: PHHY2009AU45356

PATIENT
  Sex: Male

DRUGS (8)
  1. STALEVO 100 [Suspect]
     Dosage: 200/50/200
  2. STALEVO 100 [Suspect]
     Dosage: 200/50/200 FIVE TMES DAILY
     Dates: start: 20110101
  3. STALEVO 100 [Suspect]
     Dosage: 150 MG, Q4H
  4. STALEVO 100 [Suspect]
     Dosage: 300 MG- 400 MG PER DAY
  5. STALEVO 100 [Suspect]
     Dosage: 900 MG, PER DAY (6 DIVIDED DOSES)
  6. STALEVO 100 [Suspect]
     Dosage: 125 MG, Q4H
  7. STALEVO 100 [Suspect]
     Dosage: 4 DF, (100/ 25/200 FOUR TIMES A DAY)
     Dates: start: 20090101
  8. STALEVO 100 [Suspect]
     Dosage: 150/37.5/200, FIVE TIMES A DAY

REACTIONS (12)
  - TREMOR [None]
  - AGITATION [None]
  - DRUG EFFECT DECREASED [None]
  - NIGHTMARE [None]
  - INSOMNIA [None]
  - HERPES ZOSTER [None]
  - PAIN [None]
  - MUSCLE RIGIDITY [None]
  - OVERDOSE [None]
  - MUSCLE TWITCHING [None]
  - DEPRESSION [None]
  - ANXIETY [None]
